FAERS Safety Report 11631805 (Version 31)
Quarter: 2018Q2

REPORT INFORMATION
  Report Type: Report from Study
  Country: CA (occurrence: CA)
  Receive Date: 20151015
  Receipt Date: 20180428
  Transmission Date: 20180711
  Serious: Yes (Hospitalization, Other)
  Sender: FDA-Public Use
  Company Number: CA-ROCHE-1644344

PATIENT
  Age: 51 Year
  Sex: Female
  Weight: 132 kg

DRUGS (23)
  1. XOLAIR [Suspect]
     Active Substance: OMALIZUMAB
     Route: 058
     Dates: start: 20150806
  2. XOLAIR [Suspect]
     Active Substance: OMALIZUMAB
     Route: 058
     Dates: start: 20150904
  3. XOLAIR [Suspect]
     Active Substance: OMALIZUMAB
     Dosage: UNK
     Route: 058
     Dates: start: 20160804
  4. XOLAIR [Suspect]
     Active Substance: OMALIZUMAB
     Route: 058
     Dates: start: 20170525
  5. XOLAIR [Suspect]
     Active Substance: OMALIZUMAB
     Route: 058
     Dates: start: 20170911
  6. DOXYCYCLINE. [Suspect]
     Active Substance: DOXYCYCLINE
     Indication: PRODUCT USED FOR UNKNOWN INDICATION
     Dosage: UNK
     Route: 065
  7. AERIUS (CANADA) [Concomitant]
     Indication: PRODUCT USED FOR UNKNOWN INDICATION
     Route: 065
  8. XOLAIR [Suspect]
     Active Substance: OMALIZUMAB
     Route: 058
     Dates: start: 20150903
  9. XOLAIR [Suspect]
     Active Substance: OMALIZUMAB
     Dosage: UNK
     Route: 058
     Dates: start: 20170223
  10. XOLAIR [Suspect]
     Active Substance: OMALIZUMAB
     Route: 058
     Dates: start: 20170727
  11. XOLAIR [Suspect]
     Active Substance: OMALIZUMAB
     Route: 058
     Dates: start: 20180403
  12. XOLAIR [Suspect]
     Active Substance: OMALIZUMAB
     Dosage: UNK
     Route: 058
     Dates: start: 20160928
  13. RANITIDINE. [Suspect]
     Active Substance: RANITIDINE
     Indication: PRODUCT USED FOR UNKNOWN INDICATION
     Route: 065
  14. XOLAIR [Suspect]
     Active Substance: OMALIZUMAB
     Indication: CHRONIC SPONTANEOUS URTICARIA
     Route: 058
     Dates: start: 20150611
  15. SYNTHROID [Concomitant]
     Active Substance: LEVOTHYROXINE SODIUM
     Indication: PRODUCT USED FOR UNKNOWN INDICATION
     Route: 065
     Dates: start: 2017
  16. XOLAIR [Suspect]
     Active Substance: OMALIZUMAB
     Dosage: UNK
     Route: 058
     Dates: start: 20160512
  17. XOLAIR [Suspect]
     Active Substance: OMALIZUMAB
     Route: 058
     Dates: start: 20180302
  18. SPIRONOLACTONE. [Concomitant]
     Active Substance: SPIRONOLACTONE
     Indication: PRODUCT USED FOR UNKNOWN INDICATION
     Route: 065
     Dates: start: 2017
  19. XOLAIR [Suspect]
     Active Substance: OMALIZUMAB
     Dosage: UNK
     Route: 058
     Dates: start: 20160707
  20. XOLAIR [Suspect]
     Active Substance: OMALIZUMAB
     Dosage: UNK
     Route: 058
     Dates: start: 20161228
  21. MONTELUKAST [Suspect]
     Active Substance: MONTELUKAST SODIUM
     Indication: PRODUCT USED FOR UNKNOWN INDICATION
     Route: 065
  22. REACTINE (CANADA) [Concomitant]
     Active Substance: CETIRIZINE HYDROCHLORIDE
     Indication: PRODUCT USED FOR UNKNOWN INDICATION
     Route: 065
  23. ETACRYNIC ACID [Concomitant]
     Active Substance: ETHACRYNIC ACID
     Indication: PRODUCT USED FOR UNKNOWN INDICATION
     Route: 065

REACTIONS (31)
  - Ovarian mass [Unknown]
  - Pneumonia [Unknown]
  - Sepsis [Unknown]
  - Parametritis [Unknown]
  - Pruritus [Unknown]
  - Sinusitis [Recovering/Resolving]
  - Psoriasis [Unknown]
  - Abnormal behaviour [Unknown]
  - Weight decreased [Unknown]
  - Infection [Unknown]
  - Weight increased [Unknown]
  - Cellulitis [Recovering/Resolving]
  - Limb discomfort [Unknown]
  - Nasopharyngitis [Recovering/Resolving]
  - Seasonal allergy [Not Recovered/Not Resolved]
  - Dyspnoea [Unknown]
  - Drug hypersensitivity [Unknown]
  - Dizziness [Unknown]
  - Hypotension [Recovering/Resolving]
  - Swollen tongue [Unknown]
  - Oedema peripheral [Recovering/Resolving]
  - Fungal skin infection [Unknown]
  - Oedema [Unknown]
  - Fatigue [Unknown]
  - Oxygen saturation decreased [Unknown]
  - Influenza [Unknown]
  - Malaise [Unknown]
  - Eczema [Unknown]
  - Peripheral swelling [Recovered/Resolved]
  - Dysstasia [Unknown]
  - Mouth swelling [Unknown]

NARRATIVE: CASE EVENT DATE: 20150611
